FAERS Safety Report 8250019-8 (Version None)
Quarter: 2012Q2

REPORT INFORMATION
  Report Type: 
  Country: None (occurrence: None)
  Receive Date: 20120402
  Receipt Date: 20120323
  Transmission Date: 20120825
  Serious: Yes (Death, Hospitalization)
  Sender: FDA-Public Use
  Company Number: CO-ELI_LILLY_AND_COMPANY-CO201203007567

PATIENT
  Age: 86 Year
  Sex: Female

DRUGS (7)
  1. OMEPRAZOLE [Concomitant]
  2. ACETAMINOPHEN [Concomitant]
  3. LOSARTAN POTASSIUM [Concomitant]
  4. LYRICA [Concomitant]
  5. FORTEO [Suspect]
     Indication: OSTEOPOROSIS
     Dosage: 20 UG, QD
     Route: 058
     Dates: start: 20100101
  6. CALCIUM +VIT D [Concomitant]
     Indication: SUPPLEMENTATION THERAPY
  7. TRAZODONE HCL [Concomitant]

REACTIONS (2)
  - HOSPITALISATION [None]
  - DEATH [None]
